FAERS Safety Report 7152889-3 (Version None)
Quarter: 2010Q4

REPORT INFORMATION
  Report Type: 
  Country: None (occurrence: None)
  Receive Date: 20101209
  Receipt Date: 20101209
  Transmission Date: 20110411
  Serious: Yes (Disabling)
  Sender: FDA-Public Use
  Company Number: None

PATIENT
  Sex: Female
  Weight: 58.0604 kg

DRUGS (1)
  1. CADUET [Suspect]
     Dosage: 1 EACH DAY ORAL
     Route: 048

REACTIONS (4)
  - ANXIETY [None]
  - HEART INJURY [None]
  - MUSCLE DISORDER [None]
  - PAIN [None]
